FAERS Safety Report 8994957 (Version 1)
Quarter: 2012Q4

REPORT INFORMATION
  Report Type: Spontaneous
  Country: US (occurrence: None)
  Receive Date: 20121228
  Receipt Date: 20121228
  Transmission Date: 20130627
  Serious: Yes (Other)
  Sender: FDA-Public Use
  Company Number: None

PATIENT
  Sex: Female

DRUGS (2)
  1. MYCOPHENOLATE [Suspect]
     Dosage: 500 mg BID po
     Route: 048
     Dates: start: 20121105, end: 20121227
  2. RENVELA [Concomitant]

REACTIONS (2)
  - Contusion [None]
  - Contusion [None]
